FAERS Safety Report 5196479-0 (Version None)
Quarter: 2006Q4

REPORT INFORMATION
  Report Type: 
  Country: None (occurrence: None)
  Receive Date: 20061227
  Receipt Date: 20061218
  Transmission Date: 20070319
  Serious: Yes (Other)
  Sender: FDA-Public Use
  Company Number: 2006EU003200

PATIENT
  Sex: Male
  Weight: 60 kg

DRUGS (5)
  1. PROTOPIC [Suspect]
     Indication: ECZEMA
     Dosage: 0.1% BID TOPICAL
     Route: 061
     Dates: start: 20030101
  2. PREDNISOLONE [Suspect]
     Indication: ECZEMA
     Dosage: 40 MG OTHER ORAL
     Route: 048
  3. ATARAX [Concomitant]
  4. AVEENO ANTI-ITCH (CAMPHOR) [Concomitant]
  5. DOXYCYCLINE (DOXYCYCLINE HYCLATE) [Concomitant]

REACTIONS (2)
  - IMMUNOSUPPRESSION [None]
  - SINUSITIS [None]
